FAERS Safety Report 16355694 (Version 1)
Quarter: 2019Q2

REPORT INFORMATION
  Report Type: Spontaneous
  Country: GB (occurrence: GB)
  Receive Date: 20190525
  Receipt Date: 20190525
  Transmission Date: 20190711
  Serious: Yes (Life-Threatening, Hospitalization, Other)
  Sender: FDA-Public Use
  Company Number: GB-TEVA-2019-GB-1053544

PATIENT
  Age: 73 Year
  Sex: Male

DRUGS (10)
  1. OXYCODONE HYDROCHLORIDE. [Suspect]
     Active Substance: OXYCODONE HYDROCHLORIDE
     Indication: ANALGESIC THERAPY
     Dosage: EVERY 4-6 HOURS
     Route: 048
  2. LONGTEC [Suspect]
     Active Substance: OXYCODONE HYDROCHLORIDE
     Indication: ANALGESIC THERAPY
     Route: 048
  3. LANTUS [Concomitant]
     Active Substance: INSULIN GLARGINE
  4. ANORO ELLIPTA [Concomitant]
     Active Substance: UMECLIDINIUM BROMIDE\VILANTEROL TRIFENATATE
  5. SAXAGLIPTIN [Concomitant]
     Active Substance: SAXAGLIPTIN
  6. CARBOCISTEINE [Concomitant]
     Active Substance: CARBOCYSTEINE
  7. VENTOLIN [Concomitant]
     Active Substance: ALBUTEROL SULFATE
  8. GLICLAZIDE [Concomitant]
     Active Substance: GLICLAZIDE
  9. OMEPRAZOLE. [Concomitant]
     Active Substance: OMEPRAZOLE
  10. ACIDEX [Concomitant]
     Active Substance: CALCIUM CARBONATE\SODIUM ALGINATE\SODIUM BICARBONATE

REACTIONS (9)
  - Confusional state [Unknown]
  - Toxicity to various agents [Recovered/Resolved]
  - Vomiting [Unknown]
  - Hypophagia [Unknown]
  - Constipation [Unknown]
  - Fatigue [Unknown]
  - Pneumonia [Unknown]
  - Acute kidney injury [Unknown]
  - Somnolence [Unknown]

NARRATIVE: CASE EVENT DATE: 20190408
